FAERS Safety Report 8349505-1 (Version None)
Quarter: 2012Q2

REPORT INFORMATION
  Report Type: 
  Country: None (occurrence: None)
  Receive Date: 20120510
  Receipt Date: 20120503
  Transmission Date: 20120825
  Serious: Yes (Death, Life-Threatening, Hospitalization)
  Sender: FDA-Public Use
  Company Number: ES-B.I. PHARMACEUTICALS,INC./RIDGEFIELD-2012-EU-02518BY

PATIENT
  Age: 95 Year
  Sex: Female

DRUGS (6)
  1. ALDACTONE [Suspect]
     Indication: CARDIAC FAILURE
     Route: 048
     Dates: start: 20110301, end: 20110811
  2. DIGOXIN [Concomitant]
     Dates: start: 20061201, end: 20110811
  3. FUROSEMIDE [Suspect]
     Indication: CARDIAC FAILURE
     Route: 048
     Dates: start: 20061201
  4. ASPIRIN [Concomitant]
     Dates: end: 20110811
  5. CLOPIDOGREL [Concomitant]
     Dates: start: 20081001, end: 20110811
  6. TELMISARTAN [Suspect]
     Indication: CARDIAC FAILURE
     Route: 065
     Dates: start: 20110401, end: 20110811

REACTIONS (3)
  - MULTI-ORGAN FAILURE [None]
  - HYPERKALAEMIA [None]
  - RENAL FAILURE ACUTE [None]
